FAERS Safety Report 7186030-8 (Version None)
Quarter: 2010Q4

REPORT INFORMATION
  Report Type: 
  Country: None (occurrence: None)
  Receive Date: 20101222
  Receipt Date: 20100614
  Transmission Date: 20110411
  Serious: No
  Sender: FDA-Public Use
  Company Number: US-AMGEN-TCS418456

PATIENT

DRUGS (9)
  1. ENBREL [Suspect]
     Indication: RHEUMATOID ARTHRITIS
     Dosage: 50 MG, QWK
     Route: 058
     Dates: start: 20080513
  2. FOLIC ACID [Concomitant]
  3. PREDNISONE [Concomitant]
  4. NABUMETONE [Concomitant]
  5. LEFLUNOMIDE [Concomitant]
     Dosage: UNK UNK, UNK
     Dates: start: 20090310
  6. ESOMEPRAZOLE MAGNESIUM [Concomitant]
  7. PATANOL [Concomitant]
     Dosage: UNK UNK, UNK
  8. NASACORT AQ [Concomitant]
  9. FEXOFENADINE HCL [Concomitant]

REACTIONS (7)
  - BRONCHITIS [None]
  - DIZZINESS [None]
  - HEADACHE [None]
  - INFLUENZA [None]
  - NASOPHARYNGITIS [None]
  - OROPHARYNGEAL PAIN [None]
  - TINNITUS [None]
